FAERS Safety Report 26016202 (Version 1)
Quarter: 2025Q4

REPORT INFORMATION
  Report Type: Spontaneous
  Country: EU (occurrence: EU)
  Receive Date: 20251110
  Receipt Date: 20251110
  Transmission Date: 20260118
  Serious: Yes (Life-Threatening, Hospitalization, Disabling, Other)
  Sender: AMGEN
  Company Number: None

PATIENT
  Age: 40 Year
  Sex: Male
  Weight: 86 kg

DRUGS (1)
  1. ADALIMUMAB [Suspect]
     Active Substance: ADALIMUMAB
     Indication: Psoriasis
     Dosage: ONCE PER 2 WEEKS
     Route: 065
     Dates: start: 20240220, end: 20250728

REACTIONS (7)
  - White blood cell count decreased [Not Recovered/Not Resolved]
  - Immune system disorder [Not Recovered/Not Resolved]
  - Abscess neck [Not Recovered/Not Resolved]
  - Spondylitis [Not Recovered/Not Resolved]
  - Sepsis [Not Recovered/Not Resolved]
  - Encephalitis [Not Recovered/Not Resolved]
  - Spinal cord injury [Not Recovered/Not Resolved]
